FAERS Safety Report 9247209 (Version 2)
Quarter: 2013Q3

REPORT INFORMATION
  Report Type: Spontaneous
  Country: US (occurrence: US)
  Receive Date: 20130423
  Receipt Date: 20130812
  Transmission Date: 20140515
  Serious: No
  Sender: FDA-Public Use
  Company Number: US-BIOGENIDEC-2013BI035614

PATIENT
  Age: 34 Year
  Sex: Male

DRUGS (1)
  1. TYSABRI [Suspect]
     Indication: MULTIPLE SCLEROSIS
     Route: 042
     Dates: start: 20130404

REACTIONS (5)
  - Gait disturbance [Not Recovered/Not Resolved]
  - Dysuria [Not Recovered/Not Resolved]
  - Balance disorder [Recovered/Resolved]
  - Posture abnormal [Not Recovered/Not Resolved]
  - Tremor [Recovered/Resolved]
